FAERS Safety Report 7353051-1 (Version None)
Quarter: 2011Q1

REPORT INFORMATION
  Report Type: 
  Country: None (occurrence: None)
  Receive Date: 20110304
  Receipt Date: 20110218
  Transmission Date: 20110831
  Serious: Yes (Death)
  Sender: FDA-Public Use
  Company Number: JP-2011-10344

PATIENT
  Age: 74 Year
  Sex: Female
  Weight: 37 kg

DRUGS (9)
  1. LASIX [Suspect]
     Indication: OEDEMA PERIPHERAL
     Dosage: 40 MG MILLIGRAM(S), QD, ORAL
     Route: 048
     Dates: start: 20101218, end: 20110123
  2. ASPIRIN [Concomitant]
  3. ALDACTONE [Suspect]
     Indication: OEDEMA PERIPHERAL
     Dosage: 25 MG MILLIGRAM(S),QD, ORAL
     Route: 048
     Dates: start: 20101214, end: 20110124
  4. LEVOTHYROXINE SODIUM [Concomitant]
  5. GASTER D (FAMOTIDINE) TABLET [Concomitant]
  6. ANZIEF (ALLOPURINOL) TABLET [Concomitant]
  7. WARFARIN (WARFARIN POTASSIUM) TABLET [Concomitant]
  8. CETAPRIL (ALACEPRIL) TABLET [Concomitant]
  9. SAMSCA [Suspect]
     Indication: OEDEMA PERIPHERAL
     Dosage: 15 MG MILLIGRAM(S), QD, ORAL
     Route: 048
     Dates: start: 20110118, end: 20110123

REACTIONS (2)
  - CARDIAC FAILURE [None]
  - CONDITION AGGRAVATED [None]
